FAERS Safety Report 4983738-7 (Version None)
Quarter: 2006Q1

REPORT INFORMATION
  Report Type: 
  Country: None (occurrence: None)
  Receive Date: 20060301
  Receipt Date: 20060104
  Transmission Date: 20060701
  Serious: Yes (Other)
  Sender: FDA-Public Use
  Company Number: A03200600079

PATIENT
  Age: 65 Year
  Sex: Female

DRUGS (3)
  1. ELOXATIN [Suspect]
     Indication: COLON CANCER
     Dosage: NI - INTRAVENOUS NOS
     Route: 042
     Dates: start: 20060103, end: 20060103
  2. FLUOROURACIL [Suspect]
     Indication: COLON CANCER
     Dosage: 575MG BOLUS FOLLOWED BY 860MG INFUSION - INTRAVENOUS NOS
     Route: 042
     Dates: end: 20060103
  3. LEUCOVORIN CALCIUM [Suspect]
     Indication: COLON CANCER
     Dosage: NI - INTRAVENOUS NOS
     Route: 042
     Dates: end: 20060103

REACTIONS (5)
  - CHEST PAIN [None]
  - DYSPNOEA [None]
  - HYPERSENSITIVITY [None]
  - PRURITUS [None]
  - URTICARIA [None]
